FAERS Safety Report 7501703-2 (Version None)
Quarter: 2011Q2

REPORT INFORMATION
  Report Type: 
  Country: None (occurrence: None)
  Receive Date: 20110525
  Receipt Date: 20110516
  Transmission Date: 20111010
  Serious: Yes (Other)
  Sender: FDA-Public Use
  Company Number: DE-AMGEN-DEUSP2011010794

PATIENT
  Age: 44 Year
  Sex: Female
  Weight: 62 kg

DRUGS (6)
  1. NPLATE [Suspect]
     Dosage: 360 A?G, QWK
     Route: 058
     Dates: start: 20110504
  2. ESCITALOPRAM [Suspect]
     Dosage: 10 MG, UNK
  3. NPLATE [Suspect]
     Indication: IDIOPATHIC THROMBOCYTOPENIC PURPURA
     Dosage: 3 A?G/KG, QWK
  4. NPLATE [Suspect]
     Dosage: 120 A?G, QWK
     Route: 058
     Dates: start: 20091122, end: 20101112
  5. NPLATE [Suspect]
     Dosage: 70 A?G, QWK
     Route: 058
     Dates: start: 20090304, end: 20091101
  6. NPLATE [Suspect]
     Dosage: 200 A?G, QWK
     Route: 058
     Dates: start: 20101119, end: 20110401

REACTIONS (1)
  - THERAPEUTIC RESPONSE DECREASED [None]
